FAERS Safety Report 21325029 (Version 1)
Quarter: 2022Q3

REPORT INFORMATION
  Report Type: Spontaneous
  Country: JP (occurrence: JP)
  Receive Date: 20220912
  Receipt Date: 20220912
  Transmission Date: 20221026
  Serious: Yes (Hospitalization)
  Sender: FDA-Public Use
  Company Number: JP-DSJP-DSJ-2022-132416

PATIENT
  Age: 61 Year
  Sex: Male
  Weight: 48.9 kg

DRUGS (1)
  1. EDOXABAN TOSYLATE [Suspect]
     Active Substance: EDOXABAN TOSYLATE
     Indication: Portal vein thrombosis
     Dosage: 30MG/DAY
     Route: 065

REACTIONS (2)
  - Osteonecrosis [Recovering/Resolving]
  - Haemorrhage [Unknown]
